FAERS Safety Report 5800136-4 (Version None)
Quarter: 2008Q3

REPORT INFORMATION
  Report Type: 
  Country: None (occurrence: None)
  Receive Date: 20080702
  Receipt Date: 20080702
  Transmission Date: 20090109
  Serious: Yes (Life-Threatening)
  Sender: FDA-Public Use
  Company Number: None

PATIENT
  Age: 77 Year
  Sex: Female

DRUGS (1)
  1. DIGITEK MYLAN BERTEK 0.25 MG [Suspect]
     Indication: ATRIAL FIBRILLATION
     Dosage: 0.25 MG PO DAILY, HAS BEEN TAKING FOR AT LEAST A COUPLE YEARS
     Route: 048

REACTIONS (6)
  - DIZZINESS [None]
  - DYSURIA [None]
  - HALO VISION [None]
  - NAUSEA [None]
  - PHARMACEUTICAL PRODUCT COMPLAINT [None]
  - VOMITING [None]
